FAERS Safety Report 7750255-0 (Version None)
Quarter: 2011Q3

REPORT INFORMATION
  Report Type: 
  Country: None (occurrence: None)
  Receive Date: 20110914
  Receipt Date: 20110912
  Transmission Date: 20111222
  Serious: Yes (Death)
  Sender: FDA-Public Use
  Company Number: MX-B.I. PHARMACEUTICALS,INC./RIDGEFIELD-2011-MX-00236MX

PATIENT
  Age: 71 Year
  Sex: Male

DRUGS (5)
  1. SPIRIVA [Suspect]
     Indication: CHRONIC OBSTRUCTIVE PULMONARY DISEASE
     Dosage: 18 MCG
     Route: 055
     Dates: start: 20010101, end: 20070101
  2. ASPIRIN [Concomitant]
     Indication: ANGINA PECTORIS
     Route: 048
  3. COMBIVENT [Concomitant]
     Indication: BRONCHIAL DISORDER
     Route: 055
  4. MUCOLYTICS [Concomitant]
     Indication: INCREASED UPPER AIRWAY SECRETION
     Route: 048
  5. ISOSORBIDE DINITRATE [Concomitant]
     Indication: ANGINA PECTORIS
     Route: 048

REACTIONS (1)
  - MYOCARDIAL INFARCTION [None]
